FAERS Safety Report 5042241-9 (Version None)
Quarter: 2006Q3

REPORT INFORMATION
  Report Type: 
  Country: None (occurrence: None)
  Receive Date: 20060705
  Receipt Date: 20060623
  Transmission Date: 20061208
  Serious: Yes (Hospitalization)
  Sender: FDA-Public Use
  Company Number: US-KINGPHARMUSA00001-K200600814

PATIENT
  Age: 97 Year
  Sex: Female

DRUGS (5)
  1. ALTACE [Suspect]
     Dosage: 5 MG, QD
     Route: 048
     Dates: end: 20060130
  2. SEROPRAM [Concomitant]
     Dosage: 1 U, QD
     Route: 048
  3. LEVOTHYROX [Concomitant]
     Dosage: 25 UG, QD
     Route: 048
  4. DIAMICRON [Concomitant]
     Dosage: 2 U, QD
     Route: 048
  5. SINTROM [Concomitant]
     Dosage: 2 MG, QD
     Route: 048
     Dates: end: 20060130

REACTIONS (16)
  - ANAEMIA [None]
  - ASTHENIA [None]
  - BLOOD CREATINE INCREASED [None]
  - BLOOD PRESSURE DECREASED [None]
  - BLOOD UREA ABNORMAL [None]
  - CREATININE RENAL CLEARANCE DECREASED [None]
  - FOLATE DEFICIENCY [None]
  - GENERAL PHYSICAL HEALTH DETERIORATION [None]
  - HYPERKALAEMIA [None]
  - INCOHERENT [None]
  - INFLAMMATION [None]
  - INTERNATIONAL NORMALISED RATIO INCREASED [None]
  - MEMORY IMPAIRMENT [None]
  - PALLOR [None]
  - RENAL FAILURE ACUTE [None]
  - SPEECH DISORDER [None]
